FAERS Safety Report 19651794 (Version 1)
Quarter: 2021Q3

REPORT INFORMATION
  Report Type: Spontaneous
  Country: US (occurrence: US)
  Receive Date: 20210802
  Receipt Date: 20210802
  Transmission Date: 20211014
  Serious: Yes (Hospitalization)
  Sender: FDA-Public Use
  Company Number: None

PATIENT
  Age: 38 Year
  Sex: Female

DRUGS (30)
  1. AMITRIPTYLIN [Concomitant]
     Active Substance: AMITRIPTYLINE
  2. IPRATROPIUM BR SIN [Concomitant]
  3. LEVALBUTEROL NEB SIN [Concomitant]
  4. METHADONE [Concomitant]
     Active Substance: METHADONE HYDROCHLORIDE
  5. PULMOZYME [Suspect]
     Active Substance: DORNASE ALFA
     Indication: BRONCHIECTASIS
     Dosage: 1 VIAL DAILY INHALED
     Route: 055
     Dates: start: 20191213
  6. GABAPENTIN. [Concomitant]
     Active Substance: GABAPENTIN
  7. QUETIAPINE. [Concomitant]
     Active Substance: QUETIAPINE
  8. MONTELUKAST [Concomitant]
     Active Substance: MONTELUKAST SODIUM
  9. PREDNISONE. [Concomitant]
     Active Substance: PREDNISONE
  10. BENZONATATE. [Concomitant]
     Active Substance: BENZONATATE
  11. DOXYCYCLINE. [Concomitant]
     Active Substance: DOXYCYCLINE
  12. OXYCONTIN [Concomitant]
     Active Substance: OXYCODONE HYDROCHLORIDE
  13. PANTOPRAZOLE [Concomitant]
     Active Substance: PANTOPRAZOLE
  14. PULMICORT TURBUHALER [Concomitant]
     Active Substance: BUDESONIDE
  15. PULMOZYME [Suspect]
     Active Substance: DORNASE ALFA
     Indication: CYSTIC FIBROSIS
     Dosage: 1 VIAL DAILY INHALED
     Route: 055
     Dates: start: 20191213
  16. CLONIDINE. [Concomitant]
     Active Substance: CLONIDINE
  17. CYCLOBENZAPRI [Concomitant]
  18. FEROSUL [Concomitant]
     Active Substance: FERROUS SULFATE
  19. FLOCONAZOLE [Concomitant]
     Active Substance: FLUCONAZOLE
  20. HYDROMORPH [Concomitant]
     Active Substance: HYDROMORPHONE
  21. CELECOXIB. [Concomitant]
     Active Substance: CELECOXIB
  22. ONDANSETRON [Concomitant]
     Active Substance: ONDANSETRON
  23. PERFOROMIST [Concomitant]
     Active Substance: FORMOTEROL FUMARATE DIHYDRATE
  24. CIPROFLOXACIN. [Concomitant]
     Active Substance: CIPROFLOXACIN
  25. FUROSEMIDE. [Concomitant]
     Active Substance: FUROSEMIDE
  26. LEVALBUTEROL HFA IHN [Concomitant]
  27. FOLIC ACID. [Concomitant]
     Active Substance: FOLIC ACID
  28. BUDESONIDE SUSP [Concomitant]
  29. ADVAIR HFA [Concomitant]
     Active Substance: FLUTICASONE PROPIONATE\SALMETEROL XINAFOATE
  30. EPINEPHRINE. [Concomitant]
     Active Substance: EPINEPHRINE

REACTIONS (3)
  - Sepsis [None]
  - Respiratory tract infection [None]
  - Arthralgia [None]

NARRATIVE: CASE EVENT DATE: 20210409
